FAERS Safety Report 15419084 (Version 6)
Quarter: 2022Q4

REPORT INFORMATION
  Report Type: Spontaneous
  Country: FR (occurrence: FR)
  Receive Date: 20180924
  Receipt Date: 20221005
  Transmission Date: 20230113
  Serious: Yes (Death, Hospitalization, Other)
  Sender: FDA-Public Use
  Company Number: FR-JAZZ-2018-FR-014047

PATIENT

DRUGS (7)
  1. VYXEOS [Suspect]
     Active Substance: CYTARABINE\DAUNORUBICIN
     Indication: Acute myeloid leukaemia
     Dosage: 60 MG/M2, UNK
     Route: 042
     Dates: start: 20180706, end: 20180710
  2. MEROPENEM [Suspect]
     Active Substance: MEROPENEM
     Indication: Infection
     Dosage: 3 MG, UNK
     Route: 042
     Dates: start: 20180908, end: 20180930
  3. PANTOPRAZOLE [Suspect]
     Active Substance: PANTOPRAZOLE
     Indication: Product used for unknown indication
     Dosage: 20 MG, UNK
     Route: 048
     Dates: start: 20180908, end: 20181101
  4. ESIDREX [Suspect]
     Active Substance: HYDROCHLOROTHIAZIDE
     Indication: Blood pressure management
     Dosage: 0.5 MG, UNK
     Route: 048
     Dates: start: 20180908, end: 20181002
  5. AMLODIPINE BESYLATE [Suspect]
     Active Substance: AMLODIPINE BESYLATE
     Indication: Septic shock
     Dosage: 5 MG, UNK
     Route: 048
     Dates: start: 20180908, end: 20181002
  6. PERINDOPRIL [Suspect]
     Active Substance: PERINDOPRIL
     Indication: Septic shock
     Dosage: 4 MG, UNK
     Route: 048
     Dates: start: 20180908, end: 20181002
  7. ATENOLOL [Suspect]
     Active Substance: ATENOLOL
     Indication: Product used for unknown indication
     Dosage: 60 MG, UNK
     Dates: start: 20180908, end: 20181002

REACTIONS (6)
  - Multiple organ dysfunction syndrome [Fatal]
  - Septic shock [Fatal]
  - Stenotrophomonas infection [Fatal]
  - Pseudomonas infection [Fatal]
  - Erysipelas [Recovered/Resolved]
  - Dermo-hypodermitis [Recovered/Resolved]

NARRATIVE: CASE EVENT DATE: 20180101
